FAERS Safety Report 5053720-2 (Version None)
Quarter: 2006Q3

REPORT INFORMATION
  Report Type: 
  Country: None (occurrence: None)
  Receive Date: 20060718
  Receipt Date: 20060705
  Transmission Date: 20061208
  Serious: Yes (Hospitalization)
  Sender: FDA-Public Use
  Company Number: FR-AMGEN-UK185043

PATIENT
  Age: 68 Year
  Sex: Male

DRUGS (6)
  1. NEULASTA [Suspect]
     Indication: CHEMOTHERAPY
     Route: 058
     Dates: start: 20060203, end: 20060428
  2. ARACYTINE [Suspect]
     Route: 065
     Dates: start: 20050211, end: 20060511
  3. AMIODARONE HCL [Suspect]
     Route: 048
     Dates: start: 20060615
  4. ETOPOSIDE [Suspect]
     Route: 048
     Dates: start: 20050620, end: 20060208
  5. BISOPROLOL FUMARATE [Concomitant]
     Route: 065
  6. LASILIX [Concomitant]
     Route: 065

REACTIONS (2)
  - OPTIC NEURITIS [None]
  - VISUAL ACUITY REDUCED [None]
